FAERS Safety Report 23538449 (Version 3)
Quarter: 2024Q1

REPORT INFORMATION
  Report Type: Spontaneous
  Country: US (occurrence: US)
  Receive Date: 20240219
  Receipt Date: 20240228
  Transmission Date: 20240410
  Serious: Yes (Other)
  Sender: FDA-Public Use
  Company Number: US-ORGANON-O2402USA001568

PATIENT
  Age: 39 Year
  Sex: Female

DRUGS (1)
  1. NEXPLANON [Suspect]
     Active Substance: ETONOGESTREL
     Dosage: 1 IMPLANT
     Route: 059
     Dates: start: 201901

REACTIONS (37)
  - Ectopic pregnancy with contraceptive device [Recovered/Resolved]
  - Pregnancy with implant contraceptive [Recovered/Resolved]
  - Device expulsion [Recovered/Resolved]
  - Device dislocation [Recovered/Resolved]
  - Unintended pregnancy [Recovered/Resolved]
  - Implant site bruising [Unknown]
  - Implant site pain [Not Recovered/Not Resolved]
  - Implant site irritation [Unknown]
  - Implant site hypoaesthesia [Not Recovered/Not Resolved]
  - Scar [Not Recovered/Not Resolved]
  - Implant site infection [Unknown]
  - Nerve injury [Not Recovered/Not Resolved]
  - Device breakage [Recovered/Resolved]
  - Vaginal haemorrhage [Unknown]
  - Heavy menstrual bleeding [Unknown]
  - Headache [Not Recovered/Not Resolved]
  - Weight increased [Not Recovered/Not Resolved]
  - Acne [Not Recovered/Not Resolved]
  - Ovarian cyst [Not Recovered/Not Resolved]
  - Blood pressure increased [Unknown]
  - Fluid retention [Unknown]
  - Physical disability [Not Recovered/Not Resolved]
  - Vaginal infection [Not Recovered/Not Resolved]
  - Breast pain [Not Recovered/Not Resolved]
  - Viral infection [Not Recovered/Not Resolved]
  - Oropharyngeal pain [Not Recovered/Not Resolved]
  - Abdominal pain upper [Not Recovered/Not Resolved]
  - Dysmenorrhoea [Not Recovered/Not Resolved]
  - Mood swings [Not Recovered/Not Resolved]
  - Back pain [Not Recovered/Not Resolved]
  - Nausea [Not Recovered/Not Resolved]
  - Dizziness [Not Recovered/Not Resolved]
  - Neoplasm malignant [Not Recovered/Not Resolved]
  - Urinary retention [Not Recovered/Not Resolved]
  - Micturition disorder [Not Recovered/Not Resolved]
  - Implant site scar [Not Recovered/Not Resolved]
  - Vaginal cyst [Not Recovered/Not Resolved]
